FAERS Safety Report 7311511-3 (Version None)
Quarter: 2011Q1

REPORT INFORMATION
  Report Type: 
  Country: None (occurrence: None)
  Receive Date: 20110224
  Receipt Date: 20110216
  Transmission Date: 20110831
  Serious: Yes (Other)
  Sender: FDA-Public Use
  Company Number: US-JNJFOC-20110205475

PATIENT
  Sex: Female
  Weight: 72.58 kg

DRUGS (3)
  1. DOXIL [Suspect]
     Indication: SKIN CANCER
     Route: 042
  2. PAIN MEDICATION [Concomitant]
     Indication: PAIN
     Route: 065
  3. PRILOSEC [Concomitant]
     Indication: NAUSEA
     Route: 065

REACTIONS (6)
  - SWELLING FACE [None]
  - VOMITING [None]
  - ERYTHEMA [None]
  - LIP DISORDER [None]
  - NAUSEA [None]
  - HYPOAESTHESIA ORAL [None]
